FAERS Safety Report 17429898 (Version 3)
Quarter: 2020Q1

REPORT INFORMATION
  Report Type: Spontaneous
  Country: US (occurrence: US)
  Receive Date: 20200218
  Receipt Date: 20200330
  Transmission Date: 20200409
  Serious: No
  Sender: FDA-Public Use
  Company Number: US-PFIZER INC-2020066311

PATIENT
  Age: 53 Year
  Sex: Female
  Weight: 118 kg

DRUGS (45)
  1. DOCETAXEL. [Suspect]
     Active Substance: DOCETAXEL
     Dosage: UNK
     Dates: start: 20180301, end: 20180503
  2. DOCETAXEL SANOFI-AVENTIS [Suspect]
     Active Substance: DOCETAXEL
     Dosage: 130 MG, CYCLIC (EVERY THREE WEEKS FOR 4 CYCLES)
     Dates: start: 20180301, end: 20180503
  3. DOCETAXEL SANDOZ [Suspect]
     Active Substance: DOCETAXEL
     Dosage: 165 MG, CYCLIC (EVERY THREE WEEKS FOR 4 CYCLES)
     Dates: start: 20180301, end: 20180503
  4. TAXOTERE [Suspect]
     Active Substance: DOCETAXEL
     Dosage: 75 MG, CYCLIC (EVERY THREE WEEKS FOR 4 CYCLES)
     Dates: start: 20180301, end: 20180503
  5. VIT. E OTC [Concomitant]
     Dosage: UNK
     Dates: start: 20150612
  6. DOCETAXEL. [Suspect]
     Active Substance: DOCETAXEL
     Indication: INVASIVE DUCTAL BREAST CARCINOMA
     Dosage: 165 MG, CYCLIC (EVERY THREE WEEKS FOR 4 CYCLES)
     Dates: start: 20180301, end: 20180503
  7. DOCETAXEL SANDOZ [Suspect]
     Active Substance: DOCETAXEL
     Indication: INVASIVE DUCTAL BREAST CARCINOMA
     Dosage: 165 MG, CYCLIC (EVERY THREE WEEKS FOR 4 CYCLES)
     Dates: start: 20180301, end: 20180503
  8. METFORMIN [Concomitant]
     Active Substance: METFORMIN HYDROCHLORIDE
     Dosage: UNK
     Dates: start: 20161205
  9. BACLOFEN. [Concomitant]
     Active Substance: BACLOFEN
     Dosage: UNK
     Dates: start: 20170306
  10. ANASTROZOLE. [Concomitant]
     Active Substance: ANASTROZOLE
     Indication: INVASIVE DUCTAL BREAST CARCINOMA
     Dosage: UNK
     Dates: start: 20180726
  11. NYSTATIN. [Concomitant]
     Active Substance: NYSTATIN
     Dosage: UNK
  12. GABAPENTIN. [Concomitant]
     Active Substance: GABAPENTIN
     Dosage: UNK
     Dates: start: 20141027
  13. FIBERCON OTC [Concomitant]
     Dosage: UNK
     Dates: start: 20141027
  14. NEULASTA [Concomitant]
     Active Substance: PEGFILGRASTIM
     Dosage: UNK
  15. ZOFRAN [Concomitant]
     Active Substance: ONDANSETRON HYDROCHLORIDE
     Dosage: UNK
  16. DOCETAXEL SANOFI-AVENTIS [Suspect]
     Active Substance: DOCETAXEL
     Dosage: 165 MG, CYCLIC (EVERY THREE WEEKS FOR 4 CYCLES)
     Dates: start: 20180301, end: 20180503
  17. DOCETAXEL SANDOZ [Suspect]
     Active Substance: DOCETAXEL
     Dosage: 130 MG, CYCLIC (EVERY THREE WEEKS FOR 4 CYCLES)
     Dates: start: 20180301, end: 20180503
  18. DOCETAXEL SANDOZ [Suspect]
     Active Substance: DOCETAXEL
     Dosage: 75 MG, CYCLIC (EVERY THREE WEEKS FOR 4 CYCLES)
     Dates: start: 20180301, end: 20180503
  19. LEVOTHYROXINE. [Concomitant]
     Active Substance: LEVOTHYROXINE
     Indication: HORMONE THERAPY
     Dosage: 100 MG, DAILY
     Dates: start: 1998
  20. LEVOTHYROXINE. [Concomitant]
     Active Substance: LEVOTHYROXINE
     Dosage: UNK
     Dates: start: 201101
  21. DULOXETINE. [Concomitant]
     Active Substance: DULOXETINE
     Dosage: UNK
     Dates: start: 2011
  22. ANASTROZOLE. [Concomitant]
     Active Substance: ANASTROZOLE
     Indication: HORMONE THERAPY
  23. CLARITIN [Concomitant]
     Active Substance: LORATADINE
     Dosage: UNK
  24. DIPHENOXYLATE/ATROPINE [Concomitant]
     Active Substance: ATROPINE\DIPHENOXYLATE
     Dosage: UNK
  25. TRAMADOL. [Concomitant]
     Active Substance: TRAMADOL
     Dosage: UNK, AS NEEDED
  26. DOCETAXEL. [Suspect]
     Active Substance: DOCETAXEL
     Dosage: 165 MG, CYCLIC (EVERY THREE WEEKS FOR 4 CYCLES)
     Dates: start: 20180301, end: 20180503
  27. TAXOTERE [Suspect]
     Active Substance: DOCETAXEL
     Indication: INVASIVE DUCTAL BREAST CARCINOMA
     Dosage: 165 MG, CYCLIC (EVERY THREE WEEKS FOR 4 CYCLES)
     Dates: start: 20180301, end: 20180503
  28. SPIRONOLACTONE. [Concomitant]
     Active Substance: SPIRONOLACTONE
     Dosage: UNK
     Dates: start: 20160428
  29. PRAVASTATIN. [Concomitant]
     Active Substance: PRAVASTATIN
     Dosage: UNK
     Dates: start: 2014
  30. DEXAMETHASONE. [Concomitant]
     Active Substance: DEXAMETHASONE
     Dosage: UNK
  31. DOCETAXEL SANOFI-AVENTIS [Suspect]
     Active Substance: DOCETAXEL
     Indication: INVASIVE DUCTAL BREAST CARCINOMA
     Dosage: 165 MG, CYCLIC (EVERY THREE WEEKS FOR 4 CYCLES)
     Dates: start: 20180301, end: 20180503
  32. DOCETAXEL SANOFI-AVENTIS [Suspect]
     Active Substance: DOCETAXEL
     Dosage: 75 MG, CYCLIC (EVERY THREE WEEKS FOR 4 CYCLES)
     Dates: start: 20180301, end: 20180503
  33. TAXOTERE [Suspect]
     Active Substance: DOCETAXEL
     Dosage: 130 MG, CYCLIC (EVERY THREE WEEKS FOR 4 CYCLES)
     Dates: start: 20180301, end: 20180503
  34. TAXOTERE [Suspect]
     Active Substance: DOCETAXEL
     Dosage: 165 MG, CYCLIC (EVERY THREE WEEKS FOR 4 CYCLES)
     Dates: start: 20180301, end: 20180503
  35. PANTOPRAZOLE EC [Concomitant]
     Dosage: UNK
     Dates: start: 20150721
  36. METOPROLOL SUCCINATE ER [Concomitant]
     Active Substance: METOPROLOL SUCCINATE
     Dosage: UNK
     Dates: start: 20140910
  37. BUMETANIDE. [Concomitant]
     Active Substance: BUMETANIDE
     Dosage: UNK
     Dates: start: 20150317
  38. VITAMIN D3 CALCIUM OTC [Concomitant]
     Dosage: UNK (2000 IU/500 MG)
     Dates: start: 20160801
  39. DOCETAXEL. [Suspect]
     Active Substance: DOCETAXEL
     Dosage: 75 MG, CYCLIC (EVERY THREE WEEKS FOR 4 CYCLES)
     Dates: start: 20180301, end: 20180503
  40. NEOSAR [Concomitant]
     Active Substance: CYCLOPHOSPHAMIDE
     Indication: CHEMOTHERAPY
     Dosage: UNK
  41. POTASSIUM CHLORIDE. [Concomitant]
     Active Substance: POTASSIUM CHLORIDE
     Dosage: UNK
     Dates: start: 20151027
  42. VERAPAMIL ER [Concomitant]
     Active Substance: VERAPAMIL HYDROCHLORIDE
     Dosage: UNK
     Dates: start: 20141027
  43. COMPAZINE [Concomitant]
     Active Substance: PROCHLORPERAZINE MALEATE
     Dosage: UNK
  44. ROXICODONE [Concomitant]
     Active Substance: OXYCODONE HYDROCHLORIDE
     Dosage: UNK, AS NEEDED
  45. DOCETAXEL. [Suspect]
     Active Substance: DOCETAXEL
     Dosage: 130 MG, CYCLIC (EVERY THREE WEEKS FOR 4 CYCLES)
     Dates: start: 20180301, end: 20180503

REACTIONS (6)
  - Hair colour changes [Not Recovered/Not Resolved]
  - Depression [Unknown]
  - Alopecia [Not Recovered/Not Resolved]
  - Madarosis [Not Recovered/Not Resolved]
  - Hair disorder [Not Recovered/Not Resolved]
  - Hair texture abnormal [Not Recovered/Not Resolved]

NARRATIVE: CASE EVENT DATE: 20180412
